FAERS Safety Report 10504576 (Version 1)
Quarter: 2014Q4

REPORT INFORMATION
  Report Type: Spontaneous
  Country: US (occurrence: None)
  Receive Date: 20141007
  Receipt Date: 20141007
  Transmission Date: 20150528
  Serious: No
  Sender: FDA-Public Use
  Company Number: None

PATIENT
  Age: 72 Year
  Sex: Female

DRUGS (1)
  1. EYE GLASSES FRAME (METAL) [Suspect]
     Active Substance: DEVICE
     Dates: start: 20120101

REACTIONS (2)
  - Device allergy [None]
  - Visual impairment [None]

NARRATIVE: CASE EVENT DATE: 20140926
